FAERS Safety Report 6709981-4 (Version None)
Quarter: 2010Q2

REPORT INFORMATION
  Report Type: 
  Country: None (occurrence: None)
  Receive Date: 20100503
  Receipt Date: 20100503
  Transmission Date: 20101027
  Serious: Yes (Life-Threatening, Disabling)
  Sender: FDA-Public Use
  Company Number: None

PATIENT
  Age: 89 Year
  Sex: Female

DRUGS (1)
  1. LUCENTIS [Suspect]
     Indication: PSEUDOXANTHOMA ELASTICUM
     Dosage: 0.1 ML 4-6 WEEKLY INTRAVITREAL
     Dates: start: 20070101, end: 20080101

REACTIONS (3)
  - EMBOLISM [None]
  - GANGRENE [None]
  - LEG AMPUTATION [None]
